FAERS Safety Report 14099886 (Version 1)
Quarter: 2017Q4

REPORT INFORMATION
  Report Type: Spontaneous
  Country: US (occurrence: US)
  Receive Date: 20171017
  Receipt Date: 20171017
  Transmission Date: 20180321
  Serious: No
  Sender: FDA-Public Use
  Company Number: US-009507513-1710USA008226

PATIENT
  Sex: Female

DRUGS (1)
  1. DULERA [Suspect]
     Active Substance: FORMOTEROL FUMARATE DIHYDRATE\MOMETASONE FUROATE
     Indication: ASTHMA
     Dosage: 2 PUFFS, TWICE DAILY
     Route: 055

REACTIONS (5)
  - Wheezing [Recovered/Resolved]
  - Ear infection [Recovered/Resolved]
  - Cough [Recovered/Resolved]
  - Drug dose omission [Unknown]
  - Bronchitis [Recovered/Resolved]
